FAERS Safety Report 11847022 (Version 1)
Quarter: 2015Q4

REPORT INFORMATION
  Report Type: Spontaneous
  Country: US (occurrence: US)
  Receive Date: 20151217
  Receipt Date: 20151217
  Transmission Date: 20160305
  Serious: Yes (Hospitalization)
  Sender: FDA-Public Use
  Company Number: US-UNITED THERAPEUTICS-UNT-2015-015701

PATIENT
  Age: 46 Year
  Sex: Female
  Weight: 94.79 kg

DRUGS (1)
  1. REMODULIN [Suspect]
     Active Substance: TREPROSTINIL
     Indication: PULMONARY HYPERTENSION
     Dosage: 0.030 ?G/KG/MIN, CONTINUING
     Route: 058
     Dates: start: 20131004

REACTIONS (1)
  - Genital disorder female [Unknown]

NARRATIVE: CASE EVENT DATE: 20151209
